FAERS Safety Report 16810808 (Version 1)
Quarter: 2019Q3

REPORT INFORMATION
  Report Type: Spontaneous
  Country: US (occurrence: US)
  Receive Date: 20190916
  Receipt Date: 20190916
  Transmission Date: 20191005
  Serious: No
  Sender: FDA-Public Use
  Company Number: US-VERTEX PHARMACEUTICALS-2019-008711

PATIENT
  Age: 47 Year

DRUGS (16)
  1. TOBI PODHALER [Concomitant]
     Active Substance: TOBRAMYCIN
  2. APAP CODEINE [Concomitant]
     Dosage: UNK
     Dates: start: 20190821
  3. KALYDECO [Suspect]
     Active Substance: IVACAFTOR
     Indication: CYSTIC FIBROSIS
     Dosage: 150 MG, BID
     Route: 048
     Dates: start: 20151120
  4. LEVAQUIN [Concomitant]
     Active Substance: LEVOFLOXACIN
     Dosage: 500 UNK
     Dates: start: 20170804
  5. ESCITALOPRAM [Concomitant]
     Active Substance: ESCITALOPRAM OXALATE
     Dosage: 20 UNK
     Dates: start: 20190620
  6. CREON [Concomitant]
     Active Substance: PANCRELIPASE AMYLASE\PANCRELIPASE LIPASE\PANCRELIPASE PROTEASE
     Dosage: 24000 UT
     Dates: start: 20170417
  7. LEVAQUIN [Concomitant]
     Active Substance: LEVOFLOXACIN
     Dosage: 750 MG
     Dates: start: 20170929
  8. APAP CODEINE [Concomitant]
     Dosage: UNK
     Dates: start: 20190620
  9. LEXAPRO [Concomitant]
     Active Substance: ESCITALOPRAM OXALATE
     Dosage: 5 MG
     Dates: start: 20170804
  10. TESTOSTERONE [TESTOSTERONE ENANTHATE] [Concomitant]
     Dosage: 50 MG
     Dates: start: 20170317
  11. ANDROGEL [Concomitant]
     Active Substance: TESTOSTERONE
     Dosage: 50 MG
     Dates: start: 20170417
  12. CLONAZEPAM. [Concomitant]
     Active Substance: CLONAZEPAM
     Dosage: 1 MG
     Dates: start: 20190719
  13. LEXAPRO [Concomitant]
     Active Substance: ESCITALOPRAM OXALATE
     Dosage: 10 UNK
     Dates: start: 20170929
  14. ESCITALOPRAM [Concomitant]
     Active Substance: ESCITALOPRAM OXALATE
     Dosage: 20 MG
     Dates: start: 20190319
  15. VITAMIN D [COLECALCIFEROL] [Concomitant]
     Active Substance: CHOLECALCIFEROL
     Dosage: 50000 UT
     Dates: start: 20190620
  16. CLONAZEPAM. [Concomitant]
     Active Substance: CLONAZEPAM
     Dosage: 1 UNK
     Dates: start: 20190723

REACTIONS (1)
  - Upper respiratory tract infection [Not Recovered/Not Resolved]

NARRATIVE: CASE EVENT DATE: 201908
